FAERS Safety Report 10304930 (Version 1)
Quarter: 2014Q3

REPORT INFORMATION
  Report Type: Spontaneous
  Country: FR (occurrence: FR)
  Receive Date: 20140715
  Receipt Date: 20140715
  Transmission Date: 20150326
  Serious: Yes (Death)
  Sender: FDA-Public Use
  Company Number: PHHY2014FR085630

PATIENT
  Age: 77 Year
  Sex: Female

DRUGS (14)
  1. LEVOTHYROX [Suspect]
     Active Substance: LEVOTHYROXINE
     Dosage: UNK UKN, UNK
     Route: 048
  2. NISISCO [Suspect]
     Active Substance: HYDROCHLOROTHIAZIDE\VALSARTAN
     Dosage: UNK UKN, UNK
     Route: 048
  3. TAHOR [Suspect]
     Active Substance: ATORVASTATIN CALCIUM
     Dosage: 0.5 DF, DAILY
     Route: 048
  4. EUPANTOL [Suspect]
     Active Substance: PANTOPRAZOLE SODIUM
     Dosage: UNK UKN, UNK
     Route: 048
  5. TRIVASTAL [Suspect]
     Active Substance: PIRIBEDIL
     Dosage: UNK UKN, UNK
     Route: 048
  6. DIAMICRON [Suspect]
     Active Substance: GLICLAZIDE
     Dosage: 1 DF, DAILY (30 MG)
     Route: 048
  7. SPIRONOLACTONE. [Suspect]
     Active Substance: SPIRONOLACTONE
     Dosage: 1 DF, DAILY
     Route: 048
  8. STAGID [Suspect]
     Active Substance: METFORMIN PAMOATE
     Dosage: 3 DF, DAILY (700 MG)
     Route: 048
  9. FLECAINE [Suspect]
     Active Substance: FLECAINIDE
     Dosage: 1 DF, DAILY
     Route: 048
  10. EUPRESSYL [Suspect]
     Active Substance: URAPIDIL
     Dosage: 2 DF, DAILY
     Route: 048
  11. AMIODARONE [Suspect]
     Active Substance: AMIODARONE
     Dosage: 4 DF, WEEKLY
     Route: 048
  12. ZANIDIP [Suspect]
     Active Substance: LERCANIDIPINE HYDROCHLORIDE
     Dosage: 1 DF, DAILY
     Route: 048
  13. LASILIX [Suspect]
     Active Substance: FUROSEMIDE
     Dosage: 1.5 DF, DAILY
     Route: 048
  14. PREVISCAN [Suspect]
     Active Substance: FLUINDIONE
     Indication: ATRIAL FIBRILLATION
     Dosage: 0.5 OR 0.75 DF DAILY (20 MG)

REACTIONS (2)
  - Cerebral haemorrhage [Fatal]
  - Hydrocephalus [Fatal]

NARRATIVE: CASE EVENT DATE: 20140610
